FAERS Safety Report 5020194-7 (Version None)
Quarter: 2006Q2

REPORT INFORMATION
  Report Type: 
  Country: None (occurrence: None)
  Receive Date: 20060601
  Receipt Date: 20060518
  Transmission Date: 20061013
  Serious: Yes (Hospitalization, Other)
  Sender: FDA-Public Use
  Company Number: A-CH2006-11724

PATIENT
  Age: 67 Year
  Sex: Female

DRUGS (6)
  1. TRACLEER [Suspect]
     Indication: PULMONARY HYPERTENSION
     Dosage: 125 MG BID ORAL
     Route: 048
     Dates: start: 20050107, end: 20060124
  2. LESCOL [Suspect]
     Dates: start: 20050901
  3. PREVISCAN (FLUINDIONE) [Concomitant]
  4. LASIX [Concomitant]
  5. INIPOMP (PANTOPRAZOLE) [Concomitant]
  6. ALDACTONE [Concomitant]

REACTIONS (2)
  - CONDITION AGGRAVATED [None]
  - CYTOLYTIC HEPATITIS [None]
